FAERS Safety Report 20862480 (Version 1)
Quarter: 2022Q2

REPORT INFORMATION
  Report Type: Spontaneous
  Country: US (occurrence: None)
  Receive Date: 20220523
  Receipt Date: 20220523
  Transmission Date: 20220721
  Serious: Yes (Hospitalization)
  Sender: FDA-Public Use
  Company Number: None

PATIENT
  Sex: Female

DRUGS (1)
  1. CUVITRU [Suspect]
     Active Substance: HUMAN IMMUNOGLOBULIN G
     Indication: Immunodeficiency common variable
     Dosage: OTHER STRENGTH : 2GM/10ML;?FREQUENCY : EVERY OTHER WEEK;?
     Route: 058
     Dates: start: 20201119

REACTIONS (5)
  - Pneumonia [None]
  - Urinary tract infection [None]
  - Kidney infection [None]
  - COVID-19 [None]
  - Dysuria [None]
